FAERS Safety Report 4766369-3 (Version None)
Quarter: 2005Q3

REPORT INFORMATION
  Report Type: 
  Country: None (occurrence: None)
  Receive Date: 20050909
  Receipt Date: 20050905
  Transmission Date: 20060218
  Serious: Yes (Life-Threatening)
  Sender: FDA-Public Use
  Company Number: SP-2005-002350

PATIENT
  Age: 89 Year
  Sex: Female

DRUGS (11)
  1. OLMETEC [Suspect]
     Indication: DIABETES MELLITUS
     Dosage: 40 MG QD PO
     Route: 048
     Dates: start: 20050201, end: 20050701
  2. OLMETEC [Suspect]
     Indication: HYPERTENSION
     Dosage: 40 MG QD PO
     Route: 048
     Dates: start: 20050201, end: 20050701
  3. GLICLAZIDE [Concomitant]
  4. METFORMIN [Concomitant]
  5. CLOPIDOGREL [Concomitant]
  6. ATENOLOL [Concomitant]
  7. SIMVASTATIN [Concomitant]
  8. ISMO [Concomitant]
  9. LOSEC [Concomitant]
  10. ADCAL [Concomitant]
  11. NICORANDIL [Concomitant]

REACTIONS (1)
  - HYPERKALAEMIA [None]
